FAERS Safety Report 7586436-9 (Version None)
Quarter: 2011Q3

REPORT INFORMATION
  Report Type: 
  Country: None (occurrence: None)
  Receive Date: 20110701
  Receipt Date: 20110623
  Transmission Date: 20111222
  Serious: Yes (Hospitalization)
  Sender: FDA-Public Use
  Company Number: B0728792A

PATIENT
  Age: 15 Year
  Sex: Male

DRUGS (1)
  1. ALLERMIST [Suspect]
     Route: 045

REACTIONS (1)
  - PNEUMONIA MYCOPLASMAL [None]
